FAERS Safety Report 11701246 (Version 4)
Quarter: 2016Q1

REPORT INFORMATION
  Report Type: Spontaneous
  Country: US (occurrence: US)
  Receive Date: 20151105
  Receipt Date: 20160304
  Transmission Date: 20160525
  Serious: Yes (Death, Hospitalization, Other)
  Sender: FDA-Public Use
  Company Number: US-PFIZER INC-2015368631

PATIENT
  Age: 29 Year
  Sex: Male
  Weight: 108.84 kg

DRUGS (2)
  1. REVATIO [Suspect]
     Active Substance: SILDENAFIL CITRATE
     Indication: CARDIAC DISORDER
  2. REVATIO [Suspect]
     Active Substance: SILDENAFIL CITRATE
     Indication: LUNG DISORDER
     Dosage: 80 MG, 3X/DAY (4 PILLS OF 20 MG 3 X A DAY)
     Route: 048
     Dates: start: 2010

REACTIONS (12)
  - Product use issue [Not Recovered/Not Resolved]
  - Right ventricular failure [Fatal]
  - Contusion [Recovered/Resolved]
  - Product use issue [Unknown]
  - Multiple organ dysfunction syndrome [Fatal]
  - Fall [Not Recovered/Not Resolved]
  - Haematoma [Not Recovered/Not Resolved]
  - Dyspepsia [Unknown]
  - Cardiac failure chronic [Fatal]
  - Cardiogenic shock [Fatal]
  - Haemorrhage [Recovered/Resolved]
  - Respiratory failure [Fatal]

NARRATIVE: CASE EVENT DATE: 2010
